FAERS Safety Report 10807827 (Version 1)
Quarter: 2015Q1

REPORT INFORMATION
  Report Type: Report from Study
  Country: US (occurrence: US)
  Receive Date: 20150217
  Receipt Date: 20150217
  Transmission Date: 20150721
  Serious: Yes (Other)
  Sender: FDA-Public Use
  Company Number: US-ABBVIE-10P-163-0646098-00

PATIENT
  Age: 66 Year
  Sex: Female

DRUGS (3)
  1. HUMIRA [Suspect]
     Active Substance: ADALIMUMAB
     Dates: end: 201303
  2. HUMIRA [Suspect]
     Active Substance: ADALIMUMAB
     Indication: RHEUMATOID ARTHRITIS
     Dates: start: 2002, end: 20100506
  3. HUMIRA [Suspect]
     Active Substance: ADALIMUMAB
     Dates: start: 201303

REACTIONS (17)
  - Nervousness [Unknown]
  - Hypertension [Not Recovered/Not Resolved]
  - Trigger finger [Not Recovered/Not Resolved]
  - Herpes zoster [Unknown]
  - Arthropathy [Not Recovered/Not Resolved]
  - Lipoma [Not Recovered/Not Resolved]
  - Musculoskeletal stiffness [Not Recovered/Not Resolved]
  - Arrhythmia [Not Recovered/Not Resolved]
  - Unevaluable event [Recovering/Resolving]
  - Dizziness [Recovered/Resolved]
  - Joint instability [Unknown]
  - Ear discomfort [Unknown]
  - Computerised tomogram abnormal [Not Recovered/Not Resolved]
  - Injection site pain [Not Recovered/Not Resolved]
  - Nasal congestion [Unknown]
  - Pulmonary mass [Not Recovered/Not Resolved]
  - Arthralgia [Not Recovered/Not Resolved]

NARRATIVE: CASE EVENT DATE: 2002
